FAERS Safety Report 10422300 (Version 2)
Quarter: 2014Q4

REPORT INFORMATION
  Report Type: Spontaneous
  Country: US (occurrence: US)
  Receive Date: 20140901
  Receipt Date: 20141125
  Transmission Date: 20150528
  Serious: No
  Sender: FDA-Public Use
  Company Number: US-ELI_LILLY_AND_COMPANY-US201408002443

PATIENT
  Sex: Female
  Weight: 126.8 kg

DRUGS (6)
  1. AVAPRO [Concomitant]
     Active Substance: IRBESARTAN
  2. MAGNESIUM [Concomitant]
     Active Substance: MAGNESIUM
  3. TRAMADOL [Concomitant]
     Active Substance: TRAMADOL
  4. INSULIN HUMAN [Suspect]
     Active Substance: INSULIN HUMAN
     Indication: INSULIN RESISTANCE
     Dosage: 40 U, TID
     Route: 065
  5. INSULIN HUMAN [Suspect]
     Active Substance: INSULIN HUMAN
     Indication: DIABETES MELLITUS
     Dosage: 20 U, BID
     Route: 065
     Dates: start: 20130107, end: 20140908
  6. SIMVASTATIN. [Concomitant]
     Active Substance: SIMVASTATIN

REACTIONS (3)
  - Weight increased [Unknown]
  - Dyspepsia [Unknown]
  - Injection site induration [Unknown]
